FAERS Safety Report 8852785 (Version 3)
Quarter: 2013Q2

REPORT INFORMATION
  Report Type: Spontaneous
  Country: CA (occurrence: CA)
  Receive Date: 20121022
  Receipt Date: 20130403
  Transmission Date: 20140414
  Serious: Yes (Death)
  Sender: FDA-Public Use
  Company Number: CA-B.I. PHARMACEUTICALS,INC./RIDGEFIELD-2012-BP-25986BP

PATIENT
  Age: 83 Year
  Sex: Male
  Weight: 87.8 kg

DRUGS (1)
  1. MIRAPEX [Suspect]
     Indication: RESTLESS LEGS SYNDROME
     Dates: start: 20020624, end: 200806

REACTIONS (2)
  - Pericarditis [Fatal]
  - Pathological gambling [Not Recovered/Not Resolved]
